FAERS Safety Report 8617751-5 (Version None)
Quarter: 2012Q3

REPORT INFORMATION
  Report Type: 
  Country: None (occurrence: None)
  Receive Date: 20120824
  Receipt Date: 20120821
  Transmission Date: 20120928
  Serious: Yes (Hospitalization)
  Sender: FDA-Public Use
  Company Number: US-BRISTOL-MYERS SQUIBB COMPANY-16719916

PATIENT
  Age: 67 Year
  Sex: Female

DRUGS (20)
  1. PACLITAXEL [Suspect]
     Indication: NON-SMALL CELL LUNG CANCER
     Route: 042
     Dates: start: 20120410
  2. MIRALAX [Concomitant]
     Dosage: FERQUENCY:EVERY DAY OR EVERY OTHER DAY
     Route: 048
     Dates: start: 20120530
  3. MULTI-VITAMIN [Concomitant]
     Dosage: 1DF = 1TAB
     Route: 048
     Dates: start: 20090916
  4. COUMADIN [Concomitant]
     Dates: start: 20120606
  5. DIPHENHYDRAMINE HYDROCHLORIDE [Concomitant]
     Dosage: 1DF =1 CAP, STRENGTH:DIPHENHYDRAMINE 50MG CAP, 1 CAP PRIOR TO SCAN
     Dates: start: 20120501
  6. BLINDED: IPILIMUMAB [Suspect]
     Indication: NON-SMALL CELL LUNG CANCER
     Route: 042
     Dates: start: 20120522
  7. DEXAMETHASONE [Concomitant]
     Dosage: 2 TABS ON DAY 2, 2 TABS TWICE DAILY ON DAY 3AND4
     Route: 048
     Dates: start: 20120410
  8. CARBOPLATIN [Suspect]
     Indication: NON-SMALL CELL LUNG CANCER
     Route: 042
     Dates: start: 20120410
  9. ADVAIR DISKUS 100/50 [Concomitant]
     Dosage: 1DF =250 -50 MICRIGRAM
     Route: 048
     Dates: start: 20090716
  10. PREDNISONE TAB [Concomitant]
     Dates: start: 20120501
  11. SPIRIVA [Concomitant]
     Dosage: INHALATION CAPS
     Route: 048
     Dates: start: 20090716
  12. PLACEBO [Suspect]
     Indication: NON-SMALL CELL LUNG CANCER
     Route: 042
     Dates: start: 20120522
  13. MAGNESIUM OXIDE [Concomitant]
     Dosage: TAB
     Route: 048
     Dates: start: 20120530
  14. POTASSIUM CHLORIDE [Concomitant]
     Dosage: 1DF =1TAB, STRENGTH:POTASSIUM CHLORIDE ER 20MEQ TAB
     Route: 048
     Dates: start: 20120620
  15. TRAMADOL HCL [Concomitant]
     Dosage: TAB
     Dates: start: 20120612
  16. CALCIUM CARBONATE [Concomitant]
     Dosage: 1DF = 600MG -400 UNITS
     Route: 048
     Dates: start: 20100202
  17. COUMADIN [Concomitant]
     Dosage: 1DF = 1TAB
     Route: 048
     Dates: start: 20120516
  18. OMEPRAZOLE [Concomitant]
     Dosage: DELAYED RELEASE CAP
     Route: 048
     Dates: start: 20120417
  19. PRISTIQ [Concomitant]
     Dosage: 24 HR TAB
     Route: 048
     Dates: start: 20120501
  20. PROAIR HFA [Concomitant]
     Route: 045
     Dates: start: 20100202

REACTIONS (1)
  - PNEUMONIA [None]
